FAERS Safety Report 10004260 (Version 2)
Quarter: 2014Q2

REPORT INFORMATION
  Report Type: Spontaneous
  Country: JP (occurrence: JP)
  Receive Date: 20140312
  Receipt Date: 20140401
  Transmission Date: 20141212
  Serious: Yes (Life-Threatening, Other)
  Sender: FDA-Public Use
  Company Number: JP-PFIZER INC-2014070327

PATIENT
  Sex: Female

DRUGS (1)
  1. JZOLOFT [Suspect]
     Dosage: UNK
     Route: 048

REACTIONS (1)
  - Breast cancer [Unknown]
